FAERS Safety Report 24762724 (Version 3)
Quarter: 2025Q1

REPORT INFORMATION
  Report Type: Report from Study
  Country: CA (occurrence: CA)
  Receive Date: 20241221
  Receipt Date: 20250102
  Transmission Date: 20250409
  Serious: Yes (Death, Hospitalization)
  Sender: JOHNSON AND JOHNSON
  Company Number: CA-JNJFOC-20241224199

PATIENT
  Age: 71 Year
  Sex: Female

DRUGS (1)
  1. TREMFYA [Suspect]
     Active Substance: GUSELKUMAB
     Indication: Psoriasis
     Route: 058

REACTIONS (2)
  - Death [Fatal]
  - Pneumonia [Recovering/Resolving]

NARRATIVE: CASE EVENT DATE: 20241205
